FAERS Safety Report 17701361 (Version 4)
Quarter: 2020Q2

REPORT INFORMATION
  Report Type: Spontaneous
  Country: BR (occurrence: BR)
  Receive Date: 20200423
  Receipt Date: 20200520
  Transmission Date: 20200714
  Serious: Yes (Other)
  Sender: FDA-Public Use
  Company Number: BR-PFIZER INC-2020163468

PATIENT
  Age: 66 Year
  Sex: Female

DRUGS (6)
  1. CHAMPIX [Suspect]
     Active Substance: VARENICLINE TARTRATE
     Indication: SMOKING CESSATION THERAPY
     Dosage: 1 MG, TWICE DAILY (IN THE MORNING AND AGAIN AT NIGHT; EVERY 12 HOURS)
     Dates: start: 202003, end: 2020
  2. GLIFAGE [Concomitant]
     Active Substance: METFORMIN HYDROCHLORIDE
     Indication: DIABETES MELLITUS
     Dosage: UNK
  3. DOMPERIDONE [Concomitant]
     Active Substance: DOMPERIDONE
     Indication: REFLUX GASTRITIS
     Dosage: UNK
  4. VITAMIN D [VITAMIN D NOS] [Concomitant]
     Active Substance: VITAMIN D NOS
     Dosage: UNK
  5. CENTRUM [MINERALS NOS;VITAMINS NOS] [Concomitant]
     Dosage: UNK
  6. CALCIUM [Concomitant]
     Active Substance: CALCIUM
     Dosage: UNK

REACTIONS (6)
  - Hepatic pain [Recovered/Resolved]
  - Nervousness [Not Recovered/Not Resolved]
  - Hepatic mass [Recovered/Resolved]
  - Crying [Not Recovered/Not Resolved]
  - Malaise [Recovered/Resolved]
  - Irritability [Not Recovered/Not Resolved]

NARRATIVE: CASE EVENT DATE: 202003
